FAERS Safety Report 7351180-X (Version None)
Quarter: 2011Q1

REPORT INFORMATION
  Report Type: 
  Country: None (occurrence: None)
  Receive Date: 20110304
  Receipt Date: 20110228
  Transmission Date: 20110831
  Serious: Yes (Life-Threatening)
  Sender: FDA-Public Use
  Company Number: 2011TJ0001

PATIENT
  Age: 2 Year
  Sex: Male

DRUGS (1)
  1. TWINJECT 0.3 [Suspect]
     Indication: ANAPHYLACTIC REACTION
     Dosage: .15MG, AS NEEDED
     Dates: start: 20110221, end: 20110222

REACTIONS (1)
  - DEVICE MALFUNCTION [None]
